FAERS Safety Report 9853952 (Version 1)
Quarter: 2014Q1

REPORT INFORMATION
  Report Type: Spontaneous
  Country: US (occurrence: US)
  Receive Date: 20140129
  Receipt Date: 20140129
  Transmission Date: 20141002
  Serious: No
  Sender: FDA-Public Use
  Company Number: US-PFIZER INC-2014027860

PATIENT
  Age: 50 Year
  Sex: Female
  Weight: 95.24 kg

DRUGS (1)
  1. LYRICA [Suspect]
     Dosage: 225 MG, 2X/DAY
     Route: 048

REACTIONS (3)
  - Dyspnoea [Unknown]
  - Blood cholesterol abnormal [Unknown]
  - Tobacco user [Unknown]
